FAERS Safety Report 20255479 (Version 2)
Quarter: 2022Q1

REPORT INFORMATION
  Report Type: Spontaneous
  Country: US (occurrence: US)
  Receive Date: 20211230
  Receipt Date: 20220302
  Transmission Date: 20220423
  Serious: Yes (Other)
  Sender: FDA-Public Use
  Company Number: US-NOVARTISPH-NVSC2021US298926

PATIENT
  Age: 8 Year
  Sex: Male
  Weight: 23.7 kg

DRUGS (25)
  1. KYMRIAH [Suspect]
     Active Substance: TISAGENLECLEUCEL
     Indication: Acute lymphocytic leukaemia
     Dosage: (2.8 X 10^6/KG, BAG 1)
     Route: 042
     Dates: start: 20211012
  2. PERIDEX [Concomitant]
     Active Substance: CHLORHEXIDINE GLUCONATE
     Indication: Product used for unknown indication
     Dosage: 10 ML, QID
     Route: 049
  3. MYCOSTATIN [Concomitant]
     Active Substance: NYSTATIN
     Indication: Product used for unknown indication
     Dosage: 4 ML, QID(100000 UNIT/ML, SUSPENSION 400000 UNITS), SWISHSPIT
     Route: 065
  4. ZOFRAN [Concomitant]
     Active Substance: ONDANSETRON HYDROCHLORIDE
     Indication: Product used for unknown indication
     Dosage: 3 MG, Q8H (3 MG IN D5W 3 ML IV)
     Route: 042
  5. ZOSYN [Concomitant]
     Active Substance: PIPERACILLIN SODIUM\TAZOBACTAM SODIUM
     Indication: Product used for unknown indication
     Dosage: 100 MG/KG, Q6H (2,632.5 MG IN NACL 0.9% (225MG/ML) 11.7 ML
     Route: 042
  6. NOXAFIL [Concomitant]
     Active Substance: POSACONAZOLE
     Indication: Product used for unknown indication
     Dosage: 200 MG, QD (OR) (DELAYED RELEASE TABLET)
     Route: 065
  7. ACTIGALL [Concomitant]
     Active Substance: URSODIOL
     Indication: Product used for unknown indication
     Dosage: 300 MG, Q12H (OR)
     Route: 048
  8. MOTRIN [Concomitant]
     Active Substance: IBUPROFEN
     Indication: Product used for unknown indication
     Dosage: 10 MG/KG, Q6H (SUSPENSION 200 MG, OR, Q6 HRS PRN)
     Route: 065
  9. ATIVAN [Concomitant]
     Active Substance: LORAZEPAM
     Indication: Product used for unknown indication
     Dosage: 0.02 MG/KG, Q6H (INJECTION 0.48 MG, PRN)
     Route: 042
  10. DEXTROSE [Concomitant]
     Active Substance: DEXTROSE
     Indication: Product used for unknown indication
     Dosage: 60 ML/HR (DEXTROSE 5% AND SODIUM CHLORIDE 0.45% 1000 ML WITH POTASSIUM CHLORIDE 10 MEQ INFUSION)
     Route: 042
  11. SODIUM CHLORIDE [Concomitant]
     Active Substance: SODIUM CHLORIDE
     Indication: Product used for unknown indication
     Dosage: 60 ML/HR (DEXTROSE 5% AND SODIUM CHLORIDE 0.45% 1000 ML WITH POTASSIUM CHLORIDE 10 MEQ INFUSION)
     Route: 042
  12. SODIUM CHLORIDE [Concomitant]
     Active Substance: SODIUM CHLORIDE
     Dosage: 50 ML/HR (0.9%, NEW BAG)
     Route: 041
  13. POTASSIUM CHLORIDE [Concomitant]
     Active Substance: POTASSIUM CHLORIDE
     Indication: Product used for unknown indication
     Dosage: 60 ML/HR (DEXTROSE 5% AND SODIUM CHLORIDE 0.45% 1000 ML WITH POTASSIUM CHLORIDE 10 MEQ INFUSION)
     Route: 042
  14. HUMAN IMMUNOGLOBULIN G [Concomitant]
     Active Substance: HUMAN IMMUNOGLOBULIN G
     Indication: Blood immunoglobulin G
     Dosage: 400 MG/KG
     Route: 042
     Dates: start: 20211203
  15. HUMAN IMMUNOGLOBULIN G [Concomitant]
     Active Substance: HUMAN IMMUNOGLOBULIN G
     Dosage: 400 MG/KG
     Route: 042
     Dates: start: 20220202
  16. BACTRIM [Concomitant]
     Active Substance: SULFAMETHOXAZOLE\TRIMETHOPRIM
     Indication: Pneumonia
     Dosage: UNK, BID(FRI, SAT, SUN)
     Route: 065
  17. BACTRIM [Concomitant]
     Active Substance: SULFAMETHOXAZOLE\TRIMETHOPRIM
     Dosage: UNK (RESTARTED, WAS ON HOLD DUE TO LOW COUNTS)
     Route: 065
     Dates: start: 20211229
  18. POSACONAZOLE [Concomitant]
     Active Substance: POSACONAZOLE
     Indication: Antifungal prophylaxis
     Dosage: 200 MG, QD
     Route: 065
     Dates: start: 20211111
  19. OMEPRAZOLE [Concomitant]
     Active Substance: OMEPRAZOLE
     Indication: Nausea
     Dosage: 1 DOSAGE FORM, Q8H
     Route: 048
     Dates: start: 20220119
  20. OMEPRAZOLE [Concomitant]
     Active Substance: OMEPRAZOLE
     Indication: Vomiting
  21. SULFAMETHOXAZOLE AND TRIMETHOPRIM [Concomitant]
     Active Substance: SULFAMETHOXAZOLE\TRIMETHOPRIM
     Indication: Product used for unknown indication
     Dosage: 7.6 ML, BID(2 TIMES A DAY, 3 TIMES A WEEK) (ONLY FRI, SAT, SUN)
     Route: 048
     Dates: start: 20211222
  22. SULFAMETHOXAZOLE AND TRIMETHOPRIM [Concomitant]
     Active Substance: SULFAMETHOXAZOLE\TRIMETHOPRIM
     Dosage: 7.5 ML, BID (2 TIMES A DAY, 3 TIMES A WEEK) (ONLY FRI, SAT, SUN)
     Route: 048
  23. SULFAMETHOXAZOLE AND TRIMETHOPRIM [Concomitant]
     Active Substance: SULFAMETHOXAZOLE\TRIMETHOPRIM
     Dosage: (60.8 MG OF TRIMETHOPRIM ORAL 2 TIMES A DAY, 3 TIMES A WEEK)
     Route: 065
  24. ACETAMINOPHEN [Concomitant]
     Active Substance: ACETAMINOPHEN
     Indication: Product used for unknown indication
     Dosage: 15 MG/KG, QD (325 MG) (ADMINISTER 30 MINUTES PRIOR TO IVIG)
     Route: 048
  25. DIPHENHYDRAMINE HYDROCHLORIDE [Concomitant]
     Active Substance: DIPHENHYDRAMINE HYDROCHLORIDE
     Indication: Product used for unknown indication
     Dosage: 1 MG/KG, QD (23.4 MG) (ADMINISTER 30 MINUTES PRIOR TO IVIG)
     Route: 048

REACTIONS (5)
  - Post-depletion B-cell recovery [Not Recovered/Not Resolved]
  - Hypogammaglobulinaemia [Unknown]
  - Back pain [Recovered/Resolved]
  - Hypotension [Recovered/Resolved]
  - Headache [Unknown]

NARRATIVE: CASE EVENT DATE: 20211012
